FAERS Safety Report 4661198-3 (Version None)
Quarter: 2005Q2

REPORT INFORMATION
  Report Type: 
  Country: None (occurrence: None)
  Receive Date: 20050513
  Receipt Date: 20050505
  Transmission Date: 20051028
  Serious: Yes (Death)
  Sender: FDA-Public Use
  Company Number: GB-BOEHRINGER INGELHEIM PHARMACEUTICALS, INC.-2005-UK-00767UK

PATIENT
  Sex: Female

DRUGS (8)
  1. SPIRIVA [Suspect]
     Indication: CHRONIC OBSTRUCTIVE PULMONARY DISEASE
     Route: 055
  2. COMBIVENT [Suspect]
  3. VENTOLIN HFA [Suspect]
  4. SEREVENT [Suspect]
  5. SERETIDE [Suspect]
  6. DIGOXIN [Suspect]
  7. WATER TABLETS [Suspect]
  8. CHEST TABLETS [Suspect]

REACTIONS (2)
  - CARDIAC FAILURE [None]
  - CARDIAC FAILURE CONGESTIVE [None]
